FAERS Safety Report 5824056-4 (Version None)
Quarter: 2008Q3

REPORT INFORMATION
  Report Type: 
  Country: None (occurrence: None)
  Receive Date: 20080728
  Receipt Date: 20080722
  Transmission Date: 20090109
  Serious: Yes (Hospitalization)
  Sender: FDA-Public Use
  Company Number: US-BRISTOL-MYERS SQUIBB COMPANY-14272322

PATIENT
  Age: 46 Year
  Sex: Female
  Weight: 113 kg

DRUGS (8)
  1. ABILIFY [Suspect]
     Indication: BIPOLAR DISORDER
     Dates: start: 20080625
  2. ADVAIR DISKUS 100/50 [Concomitant]
     Dosage: 1 DOSAGE FORM = 250/50 MG 1 PUFF
  3. LAMICTAL [Concomitant]
     Dosage: AT NIGHT
     Dates: start: 20071201
  4. SKELAXIN [Concomitant]
     Dates: start: 20080501
  5. LEVOTHYROXINE SODIUM [Concomitant]
  6. PROAIR HFA [Concomitant]
     Dosage: INHALER 8.5 GM
  7. SINGULAIR [Concomitant]
  8. JUNEL FE [Concomitant]
     Dates: start: 20080301

REACTIONS (7)
  - ABNORMAL BEHAVIOUR [None]
  - FEELING ABNORMAL [None]
  - HYPERSENSITIVITY [None]
  - INSOMNIA [None]
  - MANIA [None]
  - MYALGIA [None]
  - TEARFULNESS [None]
